FAERS Safety Report 5236552-1 (Version None)
Quarter: 2007Q1

REPORT INFORMATION
  Report Type: 
  Country: None (occurrence: None)
  Receive Date: 20070208
  Receipt Date: 20070130
  Transmission Date: 20070707
  Serious: Yes (Hospitalization)
  Sender: FDA-Public Use
  Company Number: 163-20785-07010528

PATIENT
  Age: 52 Year
  Sex: Female

DRUGS (3)
  1. THALOMID [Suspect]
     Indication: MULTIPLE MYELOMA
     Dosage: 200 MG, 4 IN 1 D, ORAL; 100 MG, 2 IN 1 D, ORAL
     Route: 048
     Dates: start: 20051116, end: 20060731
  2. THALOMID [Suspect]
     Indication: MULTIPLE MYELOMA
     Dosage: 200 MG, 4 IN 1 D, ORAL; 100 MG, 2 IN 1 D, ORAL
     Route: 048
     Dates: start: 20061212
  3. BISPHOSPHANATE (BISPHOSPHONATES) [Suspect]
     Indication: DRUG USE FOR UNKNOWN INDICATION

REACTIONS (1)
  - OSTEONECROSIS [None]
